FAERS Safety Report 7278263-7 (Version None)
Quarter: 2011Q1

REPORT INFORMATION
  Report Type: 
  Country: None (occurrence: None)
  Receive Date: 20110207
  Receipt Date: 20110110
  Transmission Date: 20110831
  Serious: Yes (Hospitalization, Other)
  Sender: FDA-Public Use
  Company Number: JP-PFIZER INC-JP-WYE-H15515110

PATIENT
  Age: 40 Year
  Sex: Female
  Weight: 43 kg

DRUGS (5)
  1. HYSRON-H [Suspect]
     Indication: INFERTILITY
  2. PREMARIN [Suspect]
     Indication: OFF LABEL USE
     Dosage: 0.625 MG, 1X/DAY
     Route: 048
     Dates: start: 20091001, end: 20100514
  3. HMG [Suspect]
     Indication: INFERTILITY
     Dosage: UNK
     Route: 058
     Dates: start: 20100101, end: 20100301
  4. PREMARIN [Suspect]
     Indication: INFERTILITY
  5. HYSRON-H [Suspect]
     Indication: OFF LABEL USE
     Dosage: 10 MG, 1X/DAY
     Route: 048
     Dates: end: 20100514

REACTIONS (9)
  - FAECES DISCOLOURED [None]
  - HYPERBILIRUBINAEMIA [None]
  - PRURITUS GENERALISED [None]
  - JAUNDICE [None]
  - BILIRUBINURIA [None]
  - URINE COLOUR ABNORMAL [None]
  - LIVER DISORDER [None]
  - DECREASED APPETITE [None]
  - ALANINE AMINOTRANSFERASE INCREASED [None]
